FAERS Safety Report 8444570-5 (Version None)
Quarter: 2012Q2

REPORT INFORMATION
  Report Type: 
  Country: None (occurrence: None)
  Receive Date: 20120618
  Receipt Date: 20120608
  Transmission Date: 20120825
  Serious: Yes (Hospitalization)
  Sender: FDA-Public Use
  Company Number: US-BAYER-2011-084570

PATIENT
  Age: 19 Year
  Sex: Female
  Weight: 54.422 kg

DRUGS (3)
  1. IBUPROFEN [Concomitant]
     Dosage: UNK
     Route: 048
  2. YAZ [Suspect]
     Dosage: UNK
     Dates: start: 20080101, end: 20090401
  3. GOODY+#8217;S POWDER [Concomitant]
     Dosage: UNK
     Route: 048

REACTIONS (6)
  - PULMONARY EMBOLISM [None]
  - GENERAL PHYSICAL HEALTH DETERIORATION [None]
  - DEEP VEIN THROMBOSIS [None]
  - EMOTIONAL DISTRESS [None]
  - THROMBOSIS [None]
  - PAIN [None]
